FAERS Safety Report 26161327 (Version 1)
Quarter: 2025Q4

REPORT INFORMATION
  Report Type: Spontaneous
  Country: US (occurrence: US)
  Receive Date: 20251216
  Receipt Date: 20251216
  Transmission Date: 20260118
  Serious: No
  Sender: AUROBINDO
  Company Number: US-AUROBINDO-AUR-APL-2025-015298

PATIENT
  Sex: Female

DRUGS (1)
  1. SERTRALINE [Suspect]
     Active Substance: SERTRALINE HYDROCHLORIDE
     Indication: Product used for unknown indication
     Dosage: UNK (FOR 2 WEEKS BY TAKING 2 ML ONCE DAILY ^EVERY DINNER)
     Route: 061

REACTIONS (3)
  - Wrong technique in product usage process [Unknown]
  - Product taste abnormal [Unknown]
  - Product use complaint [Unknown]
